FAERS Safety Report 5519678-4 (Version None)
Quarter: 2007Q4

REPORT INFORMATION
  Report Type: 
  Country: None (occurrence: None)
  Receive Date: 20071116
  Receipt Date: 20071106
  Transmission Date: 20080405
  Serious: Yes (Other)
  Sender: FDA-Public Use
  Company Number: DE-JNJFOC-20071003197

PATIENT
  Age: 72 Year
  Sex: Male

DRUGS (2)
  1. TAVANIC [Suspect]
     Indication: STAPHYLOCOCCAL INFECTION
     Route: 048
     Dates: start: 20070829, end: 20070907
  2. EMBOLEX [Concomitant]
     Indication: THROMBOSIS
     Route: 065

REACTIONS (3)
  - MUSCULOSKELETAL PAIN [None]
  - TENDON RUPTURE [None]
  - THROMBOSIS [None]
